FAERS Safety Report 5724076-4 (Version None)
Quarter: 2008Q2

REPORT INFORMATION
  Report Type: 
  Country: None (occurrence: None)
  Receive Date: 20080430
  Receipt Date: 20080403
  Transmission Date: 20081010
  Serious: No
  Sender: FDA-Public Use
  Company Number: US-BOEHRINGER INGELHEIM GMBH, GERMANY-2008-BP-05379BP

PATIENT
  Age: 57 Year
  Sex: Female
  Weight: 65 kg

DRUGS (5)
  1. MIRAPEX [Suspect]
     Indication: RESTLESS LEGS SYNDROME
     Route: 048
     Dates: start: 20080219
  2. DARVOCET-N 100 [Concomitant]
     Dates: start: 20010917
  3. ROBAXIN [Concomitant]
     Dates: start: 20021114
  4. FUROSEMIDE [Concomitant]
     Route: 048
     Dates: start: 20040114
  5. POTASSIUM CHLORIDE [Concomitant]
     Route: 048
     Dates: start: 20040114

REACTIONS (2)
  - ABDOMINAL PAIN [None]
  - RECTAL HAEMORRHAGE [None]
